FAERS Safety Report 5984364-3 (Version None)
Quarter: 2008Q4

REPORT INFORMATION
  Report Type: 
  Country: None (occurrence: None)
  Receive Date: 20081208
  Receipt Date: 20081129
  Transmission Date: 20090506
  Serious: Yes (Other)
  Sender: FDA-Public Use
  Company Number: PHHY2008GB28117

PATIENT
  Age: 67 Year
  Sex: Female

DRUGS (3)
  1. SLOW TRASICOR [Suspect]
     Indication: HYPERTENSION
     Dosage: 160 MG PER DAY
     Route: 048
  2. LEVOTHYROXINE SODIUM [Concomitant]
     Dosage: 50 MCG PER DAY
  3. ATORVASTATIN CALCIUM [Concomitant]
     Dosage: 20 MG PER DAY

REACTIONS (3)
  - IRRITABLE BOWEL SYNDROME [None]
  - LICHENOID KERATOSIS [None]
  - SKIN LESION [None]
